FAERS Safety Report 15654609 (Version 1)
Quarter: 2018Q4

REPORT INFORMATION
  Report Type: Spontaneous
  Country: CO (occurrence: CO)
  Receive Date: 20181126
  Receipt Date: 20181126
  Transmission Date: 20190205
  Serious: Yes (Other)
  Sender: FDA-Public Use
  Company Number: CO-PFIZER INC-2018485959

PATIENT
  Sex: Male

DRUGS (3)
  1. LYRICA [Suspect]
     Active Substance: PREGABALIN
     Dosage: UNK
  2. AMANTADINE. [Concomitant]
     Active Substance: AMANTADINE HYDROCHLORIDE
  3. FINGOLIMOD. [Concomitant]
     Active Substance: FINGOLIMOD

REACTIONS (4)
  - Prostatomegaly [Unknown]
  - Memory impairment [Unknown]
  - Urinary tract infection [Unknown]
  - Cataract [Unknown]
